FAERS Safety Report 14389401 (Version 3)
Quarter: 2019Q3

REPORT INFORMATION
  Report Type: Spontaneous
  Country: US (occurrence: US)
  Receive Date: 20180115
  Receipt Date: 20190916
  Transmission Date: 20191004
  Serious: Yes (Other)
  Sender: FDA-Public Use
  Company Number: US-SA-2017SA246397

PATIENT
  Age: 40 Year
  Sex: Female

DRUGS (12)
  1. TAXOTERE [Suspect]
     Active Substance: DOCETAXEL
     Indication: BREAST CANCER FEMALE
     Dosage: 75 MG,Q3W
     Route: 042
     Dates: start: 20120723, end: 20120723
  2. CYCLOPHOSPHAMIDE. [Concomitant]
     Active Substance: CYCLOPHOSPHAMIDE
  3. POTASSIUM [Concomitant]
     Active Substance: POTASSIUM
     Dosage: UNK UNK,UNK
     Route: 065
     Dates: start: 2006, end: 2016
  4. NEOSAR [Concomitant]
     Active Substance: CYCLOPHOSPHAMIDE
     Indication: BREAST CANCER
     Dosage: UNK UNK,QCY
     Route: 042
  5. FILGRASTIM [Concomitant]
     Active Substance: FILGRASTIM
     Indication: BREAST CANCER
  6. ADRIAMYCIN [Concomitant]
     Active Substance: DOXORUBICIN HYDROCHLORIDE
     Indication: BREAST CANCER
     Dosage: UNK UNK,QCY
     Route: 042
  7. TAMOXIFEN [Concomitant]
     Active Substance: TAMOXIFEN
     Dosage: UNK UNK,UNK
     Route: 065
     Dates: start: 20130114, end: 201306
  8. HYDROCHLOROTHIAZIDE. [Concomitant]
     Active Substance: HYDROCHLOROTHIAZIDE
  9. DOXORUBICIN [Concomitant]
     Active Substance: DOXORUBICIN
  10. TAXOTERE [Suspect]
     Active Substance: DOCETAXEL
     Dosage: 75 MG,Q3W
     Route: 042
     Dates: start: 20121106, end: 20121106
  11. CYTOXAN [Concomitant]
     Active Substance: CYCLOPHOSPHAMIDE
     Indication: BREAST CANCER
     Dosage: UNK UNK,QCY
     Route: 042
  12. TOPROL XL [Concomitant]
     Active Substance: METOPROLOL SUCCINATE
     Dosage: UNK UNK,UNK
     Route: 065
     Dates: start: 2006

REACTIONS (2)
  - Psychological trauma [Unknown]
  - Alopecia [Recovering/Resolving]

NARRATIVE: CASE EVENT DATE: 201305
